FAERS Safety Report 4615544-7 (Version None)
Quarter: 2005Q1

REPORT INFORMATION
  Report Type: 
  Country: None (occurrence: None)
  Receive Date: 20050317
  Receipt Date: 20050308
  Transmission Date: 20050727
  Serious: Yes (Hospitalization)
  Sender: FDA-Public Use
  Company Number: 2005UW03713

PATIENT
  Age: 29 Year
  Sex: Female
  Weight: 45.359 kg

DRUGS (2)
  1. DIPRIVAN [Suspect]
     Indication: OESOPHAGOGASTRODUODENOSCOPY
     Dosage: 200 MG IV
     Route: 042
     Dates: start: 20050307
  2. DIPRIVAN [Suspect]
     Indication: SEDATIVE THERAPY
     Dosage: 200 MG IV
     Route: 042
     Dates: start: 20050307

REACTIONS (6)
  - DELAYED RECOVERY FROM ANAESTHESIA [None]
  - DEPRESSED LEVEL OF CONSCIOUSNESS [None]
  - LOSS OF CONSCIOUSNESS [None]
  - MOVEMENT DISORDER [None]
  - MYOCLONIC EPILEPSY [None]
  - POST PROCEDURAL COMPLICATION [None]
